FAERS Safety Report 7420091-3 (Version None)
Quarter: 2011Q2

REPORT INFORMATION
  Report Type: 
  Country: None (occurrence: None)
  Receive Date: 20110418
  Receipt Date: 20110407
  Transmission Date: 20111010
  Serious: No
  Sender: FDA-Public Use
  Company Number: US-BIOGENIDEC-2011BI013506

PATIENT
  Age: 54 Year
  Sex: Female

DRUGS (3)
  1. TYSABRI [Suspect]
     Indication: MULTIPLE SCLEROSIS
     Route: 042
     Dates: start: 20091007
  2. TYSABRI [Suspect]
     Route: 042
     Dates: start: 20061101, end: 20080814
  3. TYSABRI [Suspect]
     Route: 042
     Dates: start: 20050201

REACTIONS (1)
  - NASOPHARYNGITIS [None]
